FAERS Safety Report 5277962-6 (Version None)
Quarter: 2007Q1

REPORT INFORMATION
  Report Type: 
  Country: None (occurrence: None)
  Receive Date: 20070321
  Receipt Date: 20070307
  Transmission Date: 20070707
  Serious: Yes (Life-Threatening, Hospitalization)
  Sender: FDA-Public Use
  Company Number: T200700263

PATIENT
  Age: 31 Year
  Sex: Male

DRUGS (3)
  1. METHYLIN [Suspect]
     Dosage: SEE IMAGE
     Route: 048
  2. IBUPROFEN [Suspect]
     Dosage: 20 TABLETS, ORAL
     Route: 048
  3. ETHANOL (ETHANOL) [Suspect]
     Dosage: 2 BOTTLES OF WINE, ORAL
     Route: 048

REACTIONS (12)
  - ADRENERGIC SYNDROME [None]
  - ALCOHOL POISONING [None]
  - BLOOD POTASSIUM DECREASED [None]
  - CONFABULATION [None]
  - DRUG TOXICITY [None]
  - DYSKINESIA [None]
  - FEELING ABNORMAL [None]
  - HALLUCINATION, AUDITORY [None]
  - MYDRIASIS [None]
  - PSYCHOMOTOR SKILLS IMPAIRED [None]
  - SUICIDE ATTEMPT [None]
  - URINARY RETENTION [None]
